FAERS Safety Report 12343025 (Version 1)
Quarter: 2016Q2

REPORT INFORMATION
  Report Type: Spontaneous
  Country: US (occurrence: US)
  Receive Date: 20160506
  Receipt Date: 20160506
  Transmission Date: 20160815
  Serious: Yes (Disabling, Congenital Anomaly)
  Sender: FDA-Public Use
  Company Number: US-ABBVIE-16P-163-1622583-00

PATIENT

DRUGS (1)
  1. DEPAKOTE [Suspect]
     Active Substance: DIVALPROEX SODIUM
     Indication: MATERNAL EXPOSURE TIMING UNSPECIFIED
     Route: 064

REACTIONS (12)
  - Antisocial behaviour [Unknown]
  - Abnormal behaviour [Unknown]
  - Congenital hand malformation [Unknown]
  - Intellectual disability [Unknown]
  - Attention deficit/hyperactivity disorder [Unknown]
  - Foetal exposure during pregnancy [Unknown]
  - Aggression [Unknown]
  - Mental impairment [Unknown]
  - Congenital foot malformation [Unknown]
  - Learning disability [Unknown]
  - Dysmorphism [Unknown]
  - Multiple congenital abnormalities [Unknown]
